FAERS Safety Report 24233947 (Version 5)
Quarter: 2025Q1

REPORT INFORMATION
  Report Type: Report from Study
  Country: IT (occurrence: IT)
  Receive Date: 20240821
  Receipt Date: 20250312
  Transmission Date: 20250408
  Serious: No
  Sender: BIOVITRUM
  Company Number: IT-BIOVITRUM-2024-IT-010880

PATIENT
  Age: 71 Year
  Sex: Female

DRUGS (4)
  1. DOPTELET [Suspect]
     Active Substance: AVATROMBOPAG MALEATE
     Indication: Immune thrombocytopenia
     Route: 048
     Dates: start: 20231011, end: 20240812
  2. PREDNISONE [Concomitant]
     Active Substance: PREDNISONE
     Indication: Product used for unknown indication
  3. NIFEREX [Concomitant]
     Indication: Product used for unknown indication
  4. PANTOPRAZOLE [Concomitant]
     Active Substance: PANTOPRAZOLE
     Indication: Product used for unknown indication

REACTIONS (1)
  - Deep vein thrombosis [Recovering/Resolving]

NARRATIVE: CASE EVENT DATE: 20240812
